FAERS Safety Report 23602594 (Version 6)
Quarter: 2024Q4

REPORT INFORMATION
  Report Type: Spontaneous
  Country: DE (occurrence: DE)
  Receive Date: 20240306
  Receipt Date: 20241127
  Transmission Date: 20250115
  Serious: Yes (Hospitalization, Other)
  Sender: SANDOZ
  Company Number: DE-ROCHE-2875564

PATIENT
  Age: 52 Year
  Sex: Female
  Weight: 62 kg

DRUGS (99)
  1. COMIRNATY (TOZINAMERAN) [Suspect]
     Active Substance: TOZINAMERAN
     Indication: COVID-19 immunisation
     Dosage: 2ND VACCINE
     Route: 065
     Dates: start: 20210526
  2. COMIRNATY (TOZINAMERAN) [Suspect]
     Active Substance: TOZINAMERAN
     Dosage: SINGLE DOSE
     Route: 065
     Dates: start: 20210415, end: 20210415
  3. CORTISONE [Suspect]
     Active Substance: CORTISONE
     Indication: Product used for unknown indication
     Dosage: UNK (ALTERNATIVE TO VOLON A)
     Route: 042
     Dates: start: 20200810, end: 20200813
  4. OCRELIZUMAB [Suspect]
     Active Substance: OCRELIZUMAB
     Indication: Product used for unknown indication
     Dosage: UNK
     Route: 065
  5. OCREVUS [Suspect]
     Active Substance: OCRELIZUMAB
     Indication: Progressive relapsing multiple sclerosis
     Dosage: 600.000MG
     Route: 042
     Dates: start: 20180523
  6. OCREVUS [Suspect]
     Active Substance: OCRELIZUMAB
     Indication: Relapsing-remitting multiple sclerosis
     Dosage: 600.000MG
     Route: 042
     Dates: start: 20210812
  7. OCREVUS [Suspect]
     Active Substance: OCRELIZUMAB
     Indication: Secondary progressive multiple sclerosis
     Dosage: 600.000MG
     Route: 042
     Dates: start: 20201028
  8. PANTOPRAZOLE [Suspect]
     Active Substance: PANTOPRAZOLE
     Indication: Product used for unknown indication
     Dosage: 40 MG
     Route: 065
  9. PANTOPRAZOLE [Suspect]
     Active Substance: PANTOPRAZOLE
     Dosage: 40 MG
     Route: 065
  10. CANNABIS SATIVA FLOWERING TOP [Concomitant]
     Active Substance: CANNABIS SATIVA FLOWERING TOP
     Indication: Product used for unknown indication
     Dosage: UNK (FLOWER) (SEVERAL TIMES PER DAY AND IN THE NIGHT)
     Route: 065
  11. CANNABIS SATIVA FLOWERING TOP [Concomitant]
     Active Substance: CANNABIS SATIVA FLOWERING TOP
     Dosage: SEVERAL TIMES PER DAY AND IN THE NIGHTCANNABIS BLOSSOMS 3-5X DAILY AND AT NIGHT;
     Route: 065
  12. CANNABIS SATIVA FLOWERING TOP [Concomitant]
     Active Substance: CANNABIS SATIVA FLOWERING TOP
     Dosage: SEVERAL TIMES PER DAY AND IN THE NIGHTCANNABIS BLOSSOMS 3-5X DAILY AND AT NIGHT;
     Route: 065
  13. CANNABIS SATIVA FLOWERING TOP [Concomitant]
     Active Substance: CANNABIS SATIVA FLOWERING TOP
     Dosage: SEVERAL TIMES PER DAY AND IN THE NIGHTCANNABIS BLOSSOMS 3-5X DAILY AND AT NIGHT;
     Route: 065
  14. CANNABIS SATIVA FLOWERING TOP [Concomitant]
     Active Substance: CANNABIS SATIVA FLOWERING TOP
     Dosage: SEVERAL TIMES PER DAY AND IN THE NIGHTCANNABIS BLOSSOMS 3-5X DAILY AND AT NIGHT;
     Route: 065
  15. CANNABIS SATIVA FLOWERING TOP [Concomitant]
     Active Substance: CANNABIS SATIVA FLOWERING TOP
     Dosage: SEVERAL TIMES PER DAY AND IN THE NIGHTCANNABIS BLOSSOMS 3-5X DAILY AND AT NIGHT;
     Route: 065
  16. CANNABIS SATIVA FLOWERING TOP [Concomitant]
     Active Substance: CANNABIS SATIVA FLOWERING TOP
     Dosage: SEVERAL TIMES PER DAY AND IN THE NIGHTCANNABIS BLOSSOMS 3-5X DAILY AND AT NIGHT;
     Route: 065
  17. CANNABIS SATIVA FLOWERING TOP [Concomitant]
     Active Substance: CANNABIS SATIVA FLOWERING TOP
     Dosage: SEVERAL TIMES PER DAY AND IN THE NIGHTCANNABIS BLOSSOMS 3-5X DAILY AND AT NIGHT;
     Route: 065
  18. CANNABIS SATIVA FLOWERING TOP [Concomitant]
     Active Substance: CANNABIS SATIVA FLOWERING TOP
     Dosage: SEVERAL TIMES PER DAY AND IN THE NIGHTCANNABIS BLOSSOMS 3-5X DAILY AND AT NIGHT;
     Route: 065
  19. CANNABIS SATIVA FLOWERING TOP [Concomitant]
     Active Substance: CANNABIS SATIVA FLOWERING TOP
     Indication: Product used for unknown indication
     Dosage: UNK (SEVERAL TIMES PER DAY AND IN THE NIGHTCANNABIS BLOSSOMS 3-5X DAILY AND AT NIGHT)
     Route: 065
  20. COTRIMOXAZOLE [Concomitant]
     Active Substance: SULFAMETHOXAZOLE\TRIMETHOPRIM
     Indication: Product used for unknown indication
     Dosage: UNK
     Route: 065
  21. DEMANNOSE [Concomitant]
     Active Substance: DEMANNOSE
     Indication: Product used for unknown indication
     Dosage: UNK
     Route: 065
  22. CHOLECALCIFEROL [Concomitant]
     Active Substance: CHOLECALCIFEROL
     Indication: Product used for unknown indication
     Dosage: 20000 IU, QW (1 PER WEEK EVERY THREE MONTHS)
     Route: 065
  23. CHOLECALCIFEROL [Concomitant]
     Active Substance: CHOLECALCIFEROL
     Dosage: 20000.000IU
     Route: 065
  24. CHOLECALCIFEROL [Concomitant]
     Active Substance: CHOLECALCIFEROL
     Dosage: 20000.000IU
     Route: 065
  25. CHOLECALCIFEROL [Concomitant]
     Active Substance: CHOLECALCIFEROL
     Dosage: 20000.000IU
     Route: 065
  26. CHOLECALCIFEROL [Concomitant]
     Active Substance: CHOLECALCIFEROL
     Dosage: 20000.000IU
     Route: 065
  27. CHOLECALCIFEROL [Concomitant]
     Active Substance: CHOLECALCIFEROL
     Dosage: 20000.000IU
     Route: 065
  28. CHOLECALCIFEROL [Concomitant]
     Active Substance: CHOLECALCIFEROL
     Dosage: 20000.000IU
     Route: 065
  29. CHOLECALCIFEROL [Concomitant]
     Active Substance: CHOLECALCIFEROL
     Dosage: 20000.000IU
     Route: 065
  30. CHOLECALCIFEROL [Concomitant]
     Active Substance: CHOLECALCIFEROL
     Dosage: 20000.000IU
     Route: 065
  31. DOMPERIDONE [Concomitant]
     Active Substance: DOMPERIDONE
     Indication: Product used for unknown indication
     Dosage: UNK
     Route: 065
  32. SULFAMETHOXAZOLE\TRIMETHOPRIM [Concomitant]
     Active Substance: SULFAMETHOXAZOLE\TRIMETHOPRIM
     Indication: Product used for unknown indication
     Dosage: UNK
     Route: 065
  33. FOLIC ACID [Concomitant]
     Active Substance: FOLIC ACID
     Indication: Product used for unknown indication
     Dosage: UNK
     Route: 065
  34. FOLIC ACID [Concomitant]
     Active Substance: FOLIC ACID
     Indication: Product used for unknown indication
     Dosage: 5 MG, QD
     Route: 065
  35. FOLIC ACID [Concomitant]
     Active Substance: FOLIC ACID
     Dosage: 5.000MG QD
     Route: 065
  36. FOLIC ACID [Concomitant]
     Active Substance: FOLIC ACID
     Dosage: 5.000MG QD
     Route: 065
  37. FOLIC ACID [Concomitant]
     Active Substance: FOLIC ACID
     Dosage: 5.000MG QD
     Route: 065
  38. FOLIC ACID [Concomitant]
     Active Substance: FOLIC ACID
     Dosage: 5.000MG QD
     Route: 065
  39. FOLIC ACID [Concomitant]
     Active Substance: FOLIC ACID
     Dosage: 5.000MG QD
     Route: 065
  40. FOLIC ACID [Concomitant]
     Active Substance: FOLIC ACID
     Dosage: 5.000MG QD
     Route: 065
  41. FOLIC ACID [Concomitant]
     Active Substance: FOLIC ACID
     Dosage: 5.000MG QD
     Route: 065
  42. FOLIC ACID [Concomitant]
     Active Substance: FOLIC ACID
     Dosage: 5.000MG QD
     Route: 065
  43. FORMOTEROL FUMARATE [Concomitant]
     Active Substance: FORMOTEROL FUMARATE
     Indication: Product used for unknown indication
     Dosage: 12 UG
     Route: 065
  44. HEPARIN [Concomitant]
     Active Substance: HEPARIN SODIUM
     Indication: Product used for unknown indication
     Dosage: UNK
     Route: 065
     Dates: start: 20200618
  45. IBUPROFEN [Concomitant]
     Active Substance: IBUPROFEN
     Dosage: UNK
     Route: 065
  46. IBUPROFEN [Concomitant]
     Active Substance: IBUPROFEN
     Dosage: UNK
     Route: 065
  47. IBUPROFEN [Concomitant]
     Active Substance: IBUPROFEN
     Dosage: UNK
     Route: 065
  48. IBUPROFEN [Concomitant]
     Active Substance: IBUPROFEN
     Dosage: UNK
     Route: 065
  49. IBUPROFEN [Concomitant]
     Active Substance: IBUPROFEN
     Dosage: UNK
     Route: 065
  50. IBUPROFEN [Concomitant]
     Active Substance: IBUPROFEN
     Dosage: UNK
     Route: 065
  51. IBUPROFEN [Concomitant]
     Active Substance: IBUPROFEN
     Dosage: UNK
     Route: 065
  52. IBUPROFEN [Concomitant]
     Active Substance: IBUPROFEN
     Dosage: UNK
     Route: 065
  53. IBUPROFEN [Concomitant]
     Active Substance: IBUPROFEN
     Indication: Product used for unknown indication
     Dosage: UNK, PRN
     Route: 065
  54. NITROFURANTOIN [Concomitant]
     Active Substance: NITROFURANTOIN
     Indication: Product used for unknown indication
     Dosage: 100 MG
     Route: 065
  55. Novalgin [Concomitant]
     Indication: Product used for unknown indication
     Dosage: UNK
     Route: 065
  56. ESTRIOL [Concomitant]
     Active Substance: ESTRIOL
     Indication: Product used for unknown indication
     Dosage: 1 MG, QW (CURRENTLY PAUSED)
     Route: 065
  57. OXYCODONE [Concomitant]
     Active Substance: OXYCODONE
     Indication: Product used for unknown indication
     Dosage: 5 MG, PRN (UP TO 4 TABLETS DAILY)
     Route: 065
  58. OXYCODONE [Concomitant]
     Active Substance: OXYCODONE
     Dosage: 5 MG AS NEEDED (UP TO 4 TABLETS DAILY) AS REQUIRED
     Route: 065
  59. OXYCODONE [Concomitant]
     Active Substance: OXYCODONE
     Dosage: 5 MG AS NEEDED (UP TO 4 TABLETS DAILY) AS REQUIRED
     Route: 065
  60. OXYCODONE [Concomitant]
     Active Substance: OXYCODONE
     Dosage: 5 MG AS NEEDED (UP TO 4 TABLETS DAILY) AS REQUIRED
     Route: 065
  61. OXYCODONE [Concomitant]
     Active Substance: OXYCODONE
     Dosage: 5 MG AS NEEDED (UP TO 4 TABLETS DAILY) AS REQUIRED
     Route: 065
  62. OXYCODONE [Concomitant]
     Active Substance: OXYCODONE
     Dosage: 5 MG AS NEEDED (UP TO 4 TABLETS DAILY) AS REQUIRED
     Route: 065
  63. OXYCODONE [Concomitant]
     Active Substance: OXYCODONE
     Dosage: 5 MG AS NEEDED (UP TO 4 TABLETS DAILY) AS REQUIRED
     Route: 065
  64. OXYCODONE [Concomitant]
     Active Substance: OXYCODONE
     Dosage: 5 MG AS NEEDED (UP TO 4 TABLETS DAILY) AS REQUIRED
     Route: 065
  65. OXYCODONE [Concomitant]
     Active Substance: OXYCODONE
     Dosage: 5 MG AS NEEDED (UP TO 4 TABLETS DAILY) AS REQUIRED
     Route: 065
  66. RAMIPRIL [Concomitant]
     Active Substance: RAMIPRIL
     Indication: Product used for unknown indication
     Dosage: 1.25 MG
     Route: 065
  67. RAMIPRIL [Concomitant]
     Active Substance: RAMIPRIL
     Dosage: 2.5 MG, QD (IN THE EVENING)
     Route: 065
  68. RAMIPRIL [Concomitant]
     Active Substance: RAMIPRIL
     Dosage: 2.5 MG (1-0-1)
     Route: 065
     Dates: start: 20190701
  69. RAMIPRIL [Concomitant]
     Active Substance: RAMIPRIL
     Dosage: 2.5 MG, PRN
     Route: 065
  70. ALBUTEROL [Concomitant]
     Active Substance: ALBUTEROL
     Dosage: UNK
     Route: 065
  71. ALBUTEROL [Concomitant]
     Active Substance: ALBUTEROL
     Dosage: UNK
     Route: 065
  72. ALBUTEROL [Concomitant]
     Active Substance: ALBUTEROL
     Dosage: UNK
     Route: 065
  73. ALBUTEROL [Concomitant]
     Active Substance: ALBUTEROL
     Dosage: UNK
     Route: 065
  74. ALBUTEROL [Concomitant]
     Active Substance: ALBUTEROL
     Dosage: UNK
     Route: 065
  75. ALBUTEROL [Concomitant]
     Active Substance: ALBUTEROL
     Dosage: UNK
     Route: 065
  76. ALBUTEROL [Concomitant]
     Active Substance: ALBUTEROL
     Dosage: UNK
     Route: 065
  77. ALBUTEROL [Concomitant]
     Active Substance: ALBUTEROL
     Dosage: UNK
     Route: 065
  78. ALBUTEROL [Concomitant]
     Active Substance: ALBUTEROL
     Indication: Product used for unknown indication
     Dosage: UNK, PRN
     Route: 065
  79. NABIXIMOLS [Concomitant]
     Active Substance: NABIXIMOLS
     Indication: Product used for unknown indication
     Dosage: UNK, PRN
     Route: 065
  80. LACTIC ACID, DL-\SODIUM LACTATE [Concomitant]
     Active Substance: LACTIC ACID, DL-\SODIUM LACTATE
     Indication: Product used for unknown indication
     Dosage: UNK
     Route: 065
  81. TRIAMCINOLONE ACETONIDE [Concomitant]
     Active Substance: TRIAMCINOLONE ACETONIDE
     Indication: Product used for unknown indication
     Dosage: 100 MG, Q3MO (ADMINISTERD INTO THE LIQUOR CEREBROSPINALIS)
     Route: 037
     Dates: start: 20200409
  82. TRIAMCINOLONE ACETONIDE [Concomitant]
     Active Substance: TRIAMCINOLONE ACETONIDE
     Dosage: 100.000MG
     Route: 065
     Dates: start: 20200409
  83. TRIAMCINOLONE ACETONIDE [Concomitant]
     Active Substance: TRIAMCINOLONE ACETONIDE
     Dosage: 100.000MG
     Route: 065
     Dates: start: 20200409
  84. TRIAMCINOLONE ACETONIDE [Concomitant]
     Active Substance: TRIAMCINOLONE ACETONIDE
     Dosage: 100.000MG
     Route: 065
     Dates: start: 20200409
  85. TRIAMCINOLONE ACETONIDE [Concomitant]
     Active Substance: TRIAMCINOLONE ACETONIDE
     Dosage: 100.000MG
     Route: 065
     Dates: start: 20200409
  86. TRIAMCINOLONE ACETONIDE [Concomitant]
     Active Substance: TRIAMCINOLONE ACETONIDE
     Dosage: 100.000MG
     Route: 065
     Dates: start: 20200409
  87. TRIAMCINOLONE ACETONIDE [Concomitant]
     Active Substance: TRIAMCINOLONE ACETONIDE
     Dosage: 100.000MG
     Route: 065
     Dates: start: 20200409
  88. TRIAMCINOLONE ACETONIDE [Concomitant]
     Active Substance: TRIAMCINOLONE ACETONIDE
     Dosage: 100.000MG
     Route: 065
     Dates: start: 20200409
  89. TRIAMCINOLONE ACETONIDE [Concomitant]
     Active Substance: TRIAMCINOLONE ACETONIDE
     Dosage: 100.000MG
     Route: 065
     Dates: start: 20200409
  90. TRIAMCINOLONE ACETONIDE [Concomitant]
     Active Substance: TRIAMCINOLONE ACETONIDE
     Dosage: UNK (INTO SPINAL FLUID), Q3MO
     Route: 065
  91. TRIAMCINOLONE ACETONIDE [Concomitant]
     Active Substance: TRIAMCINOLONE ACETONIDE
     Dosage: INTO SPINAL FLUID
     Route: 065
  92. TRIAMCINOLONE ACETONIDE [Concomitant]
     Active Substance: TRIAMCINOLONE ACETONIDE
     Dosage: INTO SPINAL FLUID
     Route: 065
  93. TRIAMCINOLONE ACETONIDE [Concomitant]
     Active Substance: TRIAMCINOLONE ACETONIDE
     Dosage: INTO SPINAL FLUID
     Route: 065
  94. TRIAMCINOLONE ACETONIDE [Concomitant]
     Active Substance: TRIAMCINOLONE ACETONIDE
     Dosage: INTO SPINAL FLUID
     Route: 065
  95. TRIAMCINOLONE ACETONIDE [Concomitant]
     Active Substance: TRIAMCINOLONE ACETONIDE
     Dosage: INTO SPINAL FLUID
     Route: 065
  96. TRIAMCINOLONE ACETONIDE [Concomitant]
     Active Substance: TRIAMCINOLONE ACETONIDE
     Dosage: INTO SPINAL FLUID
     Route: 065
  97. TRIAMCINOLONE ACETONIDE [Concomitant]
     Active Substance: TRIAMCINOLONE ACETONIDE
     Dosage: INTO SPINAL FLUID
     Route: 065
  98. TRIAMCINOLONE ACETONIDE [Concomitant]
     Active Substance: TRIAMCINOLONE ACETONIDE
     Dosage: INTO SPINAL FLUID
     Route: 065
  99. XIPAMIDE [Concomitant]
     Active Substance: XIPAMIDE
     Indication: Product used for unknown indication
     Dosage: 10 MG
     Route: 065

REACTIONS (145)
  - Uterine enlargement [Not Recovered/Not Resolved]
  - Cystitis [Not Recovered/Not Resolved]
  - Cataract [Not Recovered/Not Resolved]
  - Cataract [Not Recovered/Not Resolved]
  - Gastritis erosive [Recovered/Resolved]
  - Cardiac failure [Not Recovered/Not Resolved]
  - Cushing^s syndrome [Not Recovered/Not Resolved]
  - Urinary tract infection bacterial [Recovered/Resolved]
  - Urogenital fistula [Recovered/Resolved]
  - Multiple sclerosis relapse [Recovered/Resolved]
  - Fracture [Recovered/Resolved]
  - Periorbital swelling [Not Recovered/Not Resolved]
  - Calcinosis [Recovered/Resolved]
  - Seborrhoeic keratosis [Unknown]
  - Migraine [Unknown]
  - Body fat disorder [Not Recovered/Not Resolved]
  - Bone density increased [Not Recovered/Not Resolved]
  - B-lymphocyte count decreased [Not Recovered/Not Resolved]
  - Bone pain [Recovered/Resolved]
  - Osteoporosis [Not Recovered/Not Resolved]
  - Alopecia [Recovered/Resolved]
  - Chronic gastritis [Not Recovered/Not Resolved]
  - Dry skin [Recovered/Resolved]
  - Dry skin [Not Recovered/Not Resolved]
  - Uterine enlargement [Recovered/Resolved]
  - Gamma-glutamyltransferase increased [Recovered/Resolved]
  - Blood pressure increased [Recovered/Resolved]
  - Platelet count decreased [Recovered/Resolved]
  - Urine odour abnormal [Recovering/Resolving]
  - Platelet count increased [Not Recovered/Not Resolved]
  - Cushing^s syndrome [Not Recovered/Not Resolved]
  - Wound [Recovered/Resolved]
  - Tooth fracture [Recovered/Resolved]
  - Platelet count increased [Recovered/Resolved]
  - Blood cholesterol increased [Recovered/Resolved]
  - Pain [Recovered/Resolved]
  - Dyspepsia [Recovered/Resolved]
  - Chills [Recovered/Resolved]
  - Oedema [Recovered/Resolved]
  - Periorbital swelling [Recovered/Resolved]
  - Depression [Recovered/Resolved]
  - Fatigue [Recovered/Resolved]
  - Abdominal distension [Recovered/Resolved]
  - Erythema [Recovered/Resolved]
  - Influenza like illness [Recovered/Resolved]
  - Constipation [Recovered/Resolved]
  - Alopecia [Recovered/Resolved]
  - Pain [Recovered/Resolved]
  - Throat irritation [Recovered/Resolved]
  - Skin induration [Recovered/Resolved]
  - Fall [Unknown]
  - Irritability [Not Recovered/Not Resolved]
  - Feeling hot [Recovered/Resolved]
  - Blood pressure increased [Recovering/Resolving]
  - Oral discomfort [Recovered/Resolved]
  - Dry skin [Recovered/Resolved]
  - Listless [Recovered/Resolved]
  - Back pain [Not Recovered/Not Resolved]
  - Emotional distress [Recovered/Resolved]
  - Depressed mood [Recovered/Resolved]
  - Low density lipoprotein increased [Not Recovered/Not Resolved]
  - Meningism [Recovered/Resolved]
  - Anal incontinence [Recovered/Resolved]
  - Sinus disorder [Recovered/Resolved]
  - Sensation of foreign body [Recovered/Resolved]
  - Anal incontinence [Not Recovered/Not Resolved]
  - Bone pain [Not Recovered/Not Resolved]
  - Initial insomnia [Not Recovered/Not Resolved]
  - Ligament sprain [Recovered/Resolved]
  - Illness [Recovered/Resolved]
  - Dysstasia [Not Recovered/Not Resolved]
  - Back pain [Not Recovered/Not Resolved]
  - Oral herpes [Recovered/Resolved]
  - Anal inflammation [Recovered/Resolved]
  - Seborrhoeic keratosis [Not Recovered/Not Resolved]
  - Blood cholesterol increased [Not Recovered/Not Resolved]
  - Nasopharyngitis [Recovered/Resolved]
  - Folate deficiency [Recovered/Resolved]
  - Urinary tract infection [Recovered/Resolved]
  - Oral herpes [Recovered/Resolved]
  - Intestinal atony [Unknown]
  - Lymphocyte count decreased [Recovered/Resolved]
  - B-lymphocyte count abnormal [Recovered/Resolved]
  - Uterine enlargement [Recovered/Resolved]
  - Intestinal atony [Unknown]
  - Gamma-glutamyltransferase increased [Recovered/Resolved]
  - Folate deficiency [Recovered/Resolved]
  - Chills [Unknown]
  - Paraesthesia [Not Recovered/Not Resolved]
  - Paraesthesia [Not Recovered/Not Resolved]
  - Faeces soft [Recovered/Resolved]
  - Throat tightness [Recovered/Resolved]
  - Abdominal distension [Not Recovered/Not Resolved]
  - Asthenia [Not Recovered/Not Resolved]
  - Muscular weakness [Not Recovered/Not Resolved]
  - Pyrexia [Unknown]
  - Alopecia [Not Recovered/Not Resolved]
  - Muscle spasticity [Recovered/Resolved]
  - Muscle spasticity [Not Recovered/Not Resolved]
  - Cataract [Not Recovered/Not Resolved]
  - Eyelid ptosis [Recovered/Resolved]
  - Vision blurred [Not Recovered/Not Resolved]
  - Muscular weakness [Recovered/Resolved]
  - Muscular weakness [Recovering/Resolving]
  - SARS-CoV-2 antibody test negative [Not Recovered/Not Resolved]
  - Endometrial thickening [Recovering/Resolving]
  - Mobility decreased [Recovered/Resolved]
  - Pain in extremity [Recovered/Resolved]
  - Gait disturbance [Not Recovered/Not Resolved]
  - Vulvovaginal dryness [Unknown]
  - Cystitis noninfective [Recovered/Resolved]
  - Cystitis noninfective [Not Recovered/Not Resolved]
  - Rash [Recovered/Resolved]
  - Throat irritation [Recovered/Resolved]
  - Dizziness [Recovered/Resolved]
  - Vitamin D decreased [Recovered/Resolved]
  - Insomnia [Recovered/Resolved]
  - Insomnia [Not Recovered/Not Resolved]
  - Initial insomnia [Recovered/Resolved]
  - Weight increased [Recovered/Resolved]
  - Weight increased [Not Recovered/Not Resolved]
  - Weight increased [Not Recovered/Not Resolved]
  - Asthenia [Recovered/Resolved]
  - Asthenia [Not Recovered/Not Resolved]
  - Fluid retention [Recovered/Resolved]
  - Paraesthesia [Recovered/Resolved]
  - Diarrhoea [Recovered/Resolved]
  - Arthralgia [Recovered/Resolved]
  - Injection site warmth [Recovered/Resolved]
  - Injection site erythema [Recovered/Resolved]
  - Flatulence [Recovered/Resolved]
  - Depressed mood [Not Recovered/Not Resolved]
  - Bone density decreased [Not Recovered/Not Resolved]
  - Intervertebral disc protrusion [Recovered/Resolved]
  - Oropharyngeal pain [Recovered/Resolved]
  - Muscle twitching [Recovered/Resolved]
  - Lymphocyte count decreased [Recovered/Resolved]
  - Atypical migraine [Unknown]
  - Influenza like illness [Recovered/Resolved]
  - Weight increased [Not Recovered/Not Resolved]
  - Asthenia [Recovered/Resolved]
  - Sleep disorder [Not Recovered/Not Resolved]
  - Inappropriate affect [Recovered/Resolved]
  - Inappropriate schedule of product administration [Unknown]
  - Off label use [Unknown]

NARRATIVE: CASE EVENT DATE: 20180523
